FAERS Safety Report 26169698 (Version 1)
Quarter: 2025Q4

REPORT INFORMATION
  Report Type: Spontaneous
  Country: CN (occurrence: CN)
  Receive Date: 20251217
  Receipt Date: 20251217
  Transmission Date: 20260118
  Serious: Yes (Hospitalization)
  Sender: JOHNSON AND JOHNSON
  Company Number: CN-BAYER-2025A159299

PATIENT
  Age: 81 Year
  Sex: Male
  Weight: 46 kg

DRUGS (1)
  1. XARELTO [Suspect]
     Active Substance: RIVAROXABAN
     Indication: Atrial fibrillation
     Dosage: 15 MG, QD
     Route: 048
     Dates: start: 20250613, end: 20251107

REACTIONS (4)
  - Subdural haemorrhage [Recovering/Resolving]
  - Aphasia [Unknown]
  - Confusional state [Unknown]
  - Subdural effusion [Unknown]

NARRATIVE: CASE EVENT DATE: 20251107
